FAERS Safety Report 8022100-X (Version None)
Quarter: 2012Q1

REPORT INFORMATION
  Report Type: 
  Country: None (occurrence: None)
  Receive Date: 20120104
  Receipt Date: 20120102
  Transmission Date: 20120608
  Serious: Yes (Hospitalization)
  Sender: FDA-Public Use
  Company Number: US-B.I. PHARMACEUTICALS,INC./RIDGEFIELD-2012-BP-00077BP

PATIENT
  Sex: Male

DRUGS (4)
  1. SINGULAIR [Concomitant]
     Indication: SINUS DISORDER
     Dosage: 10 MG
     Route: 048
     Dates: start: 20050101
  2. LISINOPRIL [Concomitant]
     Indication: HYPERTENSION
     Dosage: 10 MG
     Route: 048
     Dates: start: 20040101
  3. AMLODIPINE [Concomitant]
     Indication: HYPERTENSION
     Dosage: 10 MG
     Route: 048
     Dates: start: 20040101
  4. COMBIVENT [Suspect]
     Indication: EMPHYSEMA
     Dosage: 108 MCG
     Route: 055
     Dates: start: 20050101

REACTIONS (1)
  - TREMOR [None]
